FAERS Safety Report 11593712 (Version 2)
Quarter: 2015Q4

REPORT INFORMATION
  Report Type: Spontaneous
  Country: DE (occurrence: DE)
  Receive Date: 20151005
  Receipt Date: 20151013
  Transmission Date: 20160304
  Serious: Yes (Other)
  Sender: FDA-Public Use
  Company Number: DE-SYNTHON BV-NL01PV14.36078

PATIENT
  Age: 31 Year
  Sex: Male

DRUGS (1)
  1. ZOLPIDEM [Suspect]
     Active Substance: ZOLPIDEM\ZOLPIDEM TARTRATE
     Indication: INSOMNIA
     Dosage: 10 MG, UNK

REACTIONS (3)
  - Toxicity to various agents [Unknown]
  - Sleep disorder [Unknown]
  - Amnesia [Unknown]
